FAERS Safety Report 19465021 (Version 3)
Quarter: 2021Q2

REPORT INFORMATION
  Report Type: Spontaneous
  Country: US (occurrence: US)
  Receive Date: 20210626
  Receipt Date: 20210628
  Transmission Date: 20210717
  Serious: No
  Sender: FDA-Public Use
  Company Number: US-ELI_LILLY_AND_COMPANY-US202106012939

PATIENT
  Sex: Female

DRUGS (2)
  1. TALTZ [Suspect]
     Active Substance: IXEKIZUMAB
     Indication: PSORIATIC ARTHROPATHY
     Dosage: 80 MG, UNKNOWN
     Route: 065
     Dates: start: 202104
  2. TALTZ [Suspect]
     Active Substance: IXEKIZUMAB
     Indication: RHEUMATOID ARTHRITIS

REACTIONS (3)
  - Crying [Unknown]
  - Eczema [Unknown]
  - Injection site pain [Unknown]
